FAERS Safety Report 19879513 (Version 1)
Quarter: 2021Q3

REPORT INFORMATION
  Report Type: Spontaneous
  Country: NO (occurrence: NO)
  Receive Date: 20210924
  Receipt Date: 20210924
  Transmission Date: 20211014
  Serious: Yes (Hospitalization, Other)
  Sender: FDA-Public Use
  Company Number: NO-ACCORD-239265

PATIENT
  Age: 80 Year
  Sex: Female

DRUGS (5)
  1. SULFAMETHOXAZOLE/TRIMETHOPRIM [Concomitant]
     Active Substance: SULFAMETHOXAZOLE\TRIMETHOPRIM
     Indication: PROPHYLAXIS
  2. MYCOPHENOLIC ACID. [Suspect]
     Active Substance: MYCOPHENOLIC ACID
     Indication: NERVOUS SYSTEM DISORDER
     Dosage: 1 G X 2
     Route: 048
  3. PANTOPRAZOLE [Concomitant]
     Active Substance: PANTOPRAZOLE
     Indication: PROPHYLAXIS
     Dosage: 40 MG X 1
     Route: 048
  4. PREDNISOLONE. [Suspect]
     Active Substance: PREDNISOLONE
     Indication: IMMUNOSUPPRESSION
     Dosage: 80 MG X 1 (1 MG / KG), 60 MGX2
     Route: 048
  5. ENOXAPARIN [Concomitant]
     Active Substance: ENOXAPARIN
     Dosage: 1 MG / KG X2

REACTIONS (8)
  - Pain [Unknown]
  - Condition aggravated [Unknown]
  - Apnoea [Unknown]
  - Dysstasia [Unknown]
  - Paresis [Unknown]
  - Muscular weakness [Unknown]
  - Off label use [Unknown]
  - Movement disorder [Unknown]
